FAERS Safety Report 15351410 (Version 1)
Quarter: 2018Q3

REPORT INFORMATION
  Report Type: Report from Study
  Country: DE (occurrence: DE)
  Receive Date: 20180905
  Receipt Date: 20180905
  Transmission Date: 20181010
  Serious: Yes (Hospitalization)
  Sender: FDA-Public Use
  Company Number: DE-ROCHE-2140078

PATIENT
  Age: 78 Year
  Sex: Female
  Weight: 58 kg

DRUGS (18)
  1. BEVACIZUMAB. [Suspect]
     Active Substance: BEVACIZUMAB
     Indication: OVARIAN CANCER
     Dosage: DATE OF MOST RECENT DOSE OF BEVACIZUMAB ADMINISTERED PRIOR TO SAE ONSET (870 MG): 29/MAY/2018
     Route: 042
     Dates: start: 20180529
  2. EMEND [Concomitant]
     Active Substance: APREPITANT
     Indication: PROPHYLAXIS
     Route: 065
     Dates: start: 20180508, end: 20180510
  3. EMEND [Concomitant]
     Active Substance: APREPITANT
     Route: 065
     Dates: start: 20180529, end: 20180531
  4. ATEZOLIZUMAB. [Suspect]
     Active Substance: ATEZOLIZUMAB
     Indication: OVARIAN CANCER
     Dosage: DATE OF MOST RECENT DOSE OF ATEZOLIZUMAB ADMINISTERED PRIOR TO SAE ONSET: 29/MAY/2018
     Route: 042
     Dates: start: 20180508
  5. DEXAMETHASON [Concomitant]
     Active Substance: DEXAMETHASONE
     Indication: HYPERSENSITIVITY
     Route: 042
     Dates: start: 20180529, end: 20180529
  6. GRANISETRON [Concomitant]
     Active Substance: GRANISETRON
     Indication: PROPHYLAXIS
     Route: 065
     Dates: start: 20180529, end: 20180529
  7. GRANISETRON [Concomitant]
     Active Substance: GRANISETRON
     Route: 065
     Dates: start: 20180508, end: 20180508
  8. DEXAMETHASON [Concomitant]
     Active Substance: DEXAMETHASONE
     Indication: PROPHYLAXIS
     Route: 042
     Dates: start: 20180508, end: 20180508
  9. PACLITAXEL. [Suspect]
     Active Substance: PACLITAXEL
     Indication: OVARIAN CANCER
     Dosage: DATE OF MOST RECENT DOSE OF PACLITAXEL ADMINISTERED PRIOR TO SAE ONSET (295.75 MG): 29/MAY/2018
     Route: 042
     Dates: start: 20180508
  10. CANDESARTAN. [Concomitant]
     Active Substance: CANDESARTAN
     Indication: HYPERTENSION
     Route: 065
     Dates: start: 20131001
  11. DEXAMETHASON [Concomitant]
     Active Substance: DEXAMETHASONE
     Route: 042
     Dates: start: 20180529, end: 20180529
  12. RANITIDIN [Concomitant]
     Active Substance: RANITIDINE HYDROCHLORIDE
     Indication: PROPHYLAXIS
     Route: 065
     Dates: start: 20180508, end: 20180508
  13. TAVEGIL [Concomitant]
     Active Substance: CLEMASTINE FUMARATE
     Indication: PROPHYLAXIS
     Route: 065
     Dates: start: 20180508, end: 20180508
  14. TAVEGIL [Concomitant]
     Active Substance: CLEMASTINE FUMARATE
     Route: 065
     Dates: start: 20180529, end: 20180529
  15. FENISTIL (GERMANY) [Concomitant]
     Indication: HYPERSENSITIVITY
     Route: 065
     Dates: start: 20180529, end: 20180529
  16. AUGMENTAN [Concomitant]
     Active Substance: AMOXICILLIN\CLAVULANATE POTASSIUM
     Indication: WOUND INFECTION
     Dosage: FORM: 875/125
     Route: 065
     Dates: start: 20180518, end: 20180626
  17. CARBOPLATIN. [Suspect]
     Active Substance: CARBOPLATIN
     Indication: OVARIAN CANCER
     Dosage: DATE OF MOST RECENT DOSE OF CARBOPLATIN ADMINISTERED PRIOR TO SAE ONSET (480.84 MG): 29/MAY/2018?AT
     Route: 042
     Dates: start: 20180508
  18. RANITIDIN [Concomitant]
     Active Substance: RANITIDINE HYDROCHLORIDE
     Route: 065
     Dates: start: 20180529, end: 20180529

REACTIONS (1)
  - Concussion [Recovered/Resolved]

NARRATIVE: CASE EVENT DATE: 20180604
